FAERS Safety Report 14831467 (Version 2)
Quarter: 2018Q2

REPORT INFORMATION
  Report Type: Spontaneous
  Country: GB (occurrence: GB)
  Receive Date: 20180501
  Receipt Date: 20180511
  Transmission Date: 20180711
  Serious: Yes (Death)
  Sender: FDA-Public Use
  Company Number: GB-BAXTER-2018BAX012975

PATIENT
  Sex: Male

DRUGS (6)
  1. PRISMASOL 4 [Suspect]
     Active Substance: DEXTROSE\LACTIC ACID\MAGNESIUM CL\POTASSIUM CL\SODIUM BICARBONATE\SODIUM CL
     Indication: ESCHERICHIA BACTERAEMIA
     Route: 010
     Dates: start: 20180305, end: 20180306
  2. PRISMASOL 4 [Suspect]
     Active Substance: DEXTROSE\LACTIC ACID\MAGNESIUM CL\POTASSIUM CL\SODIUM BICARBONATE\SODIUM CL
     Indication: CONTINUOUS HAEMODIAFILTRATION
  3. BICART 720 [Suspect]
     Active Substance: SODIUM BICARBONATE
     Indication: ESCHERICHIA BACTERAEMIA
  4. PRISMASOL 4 [Suspect]
     Active Substance: DEXTROSE\LACTIC ACID\MAGNESIUM CL\POTASSIUM CL\SODIUM BICARBONATE\SODIUM CL
     Indication: SEPTIC SHOCK
  5. BICART 720 [Suspect]
     Active Substance: SODIUM BICARBONATE
     Indication: SEPTIC SHOCK
     Route: 010
     Dates: start: 20180305, end: 20180306
  6. BICART 720 [Suspect]
     Active Substance: SODIUM BICARBONATE
     Indication: CONTINUOUS HAEMODIAFILTRATION

REACTIONS (5)
  - Septic shock [Fatal]
  - Haemorrhage [Unknown]
  - Escherichia bacteraemia [Fatal]
  - Multiple organ dysfunction syndrome [Fatal]
  - Drug administration error [Unknown]

NARRATIVE: CASE EVENT DATE: 20180305
